FAERS Safety Report 20010017 (Version 1)
Quarter: 2021Q4

REPORT INFORMATION
  Report Type: Spontaneous
  Country: US (occurrence: US)
  Receive Date: 20211029
  Receipt Date: 20211029
  Transmission Date: 20220303
  Serious: No
  Sender: FDA-Public Use
  Company Number: None

PATIENT
  Age: 12 Year
  Sex: Male

DRUGS (2)
  1. GABAPENTIN [Suspect]
     Active Substance: GABAPENTIN
     Indication: Pain in extremity
     Route: 065
     Dates: start: 2011
  2. TIAGABINE [Suspect]
     Active Substance: TIAGABINE
     Indication: Pain in extremity
     Route: 065
     Dates: start: 2011

REACTIONS (3)
  - Abnormal behaviour [Unknown]
  - Sedation [Unknown]
  - Drug ineffective for unapproved indication [Unknown]
